FAERS Safety Report 6118783-1 (Version None)
Quarter: 2009Q1

REPORT INFORMATION
  Report Type: 
  Country: None (occurrence: None)
  Receive Date: 20090314
  Receipt Date: 20090218
  Transmission Date: 20090719
  Serious: No
  Sender: FDA-Public Use
  Company Number: US-ABBOTT-09P-163-0560360-00

PATIENT
  Sex: Male
  Weight: 108.96 kg

DRUGS (4)
  1. HUMIRA [Suspect]
     Indication: ANKYLOSING SPONDYLITIS
     Dates: start: 20090101
  2. NAPROSYN [Concomitant]
     Indication: ANKYLOSING SPONDYLITIS
  3. SKELAXIN [Concomitant]
     Indication: MUSCLE SPASMS
  4. MULTI-VITAMIN [Concomitant]
     Indication: MEDICAL DIET
     Dosage: UNKNOWN
     Route: 048

REACTIONS (2)
  - INJECTION SITE PAIN [None]
  - INJECTION SITE PRURITUS [None]
